FAERS Safety Report 7023774-2 (Version None)
Quarter: 2010Q4

REPORT INFORMATION
  Report Type: 
  Country: None (occurrence: None)
  Receive Date: 20101001
  Receipt Date: 20100922
  Transmission Date: 20110411
  Serious: Yes (Hospitalization)
  Sender: FDA-Public Use
  Company Number: BR-US-EMD SERONO, INC.-7018634

PATIENT
  Sex: Female

DRUGS (6)
  1. REBIF [Suspect]
     Indication: RELAPSING-REMITTING MULTIPLE SCLEROSIS
     Route: 058
  2. PRESSOTEC [Concomitant]
  3. HYDROCHLOROTHIAZIDE [Concomitant]
  4. DORFLEX [Concomitant]
  5. FLUOXETINE [Concomitant]
  6. OMEPRAZOLE [Concomitant]

REACTIONS (3)
  - BONE EROSION [None]
  - MULTIPLE SCLEROSIS RELAPSE [None]
  - TOOTH LOSS [None]
